FAERS Safety Report 5343886-9 (Version None)
Quarter: 2007Q2

REPORT INFORMATION
  Report Type: 
  Country: None (occurrence: None)
  Receive Date: 20070604
  Receipt Date: 20070522
  Transmission Date: 20071010
  Serious: Yes (Other)
  Sender: FDA-Public Use
  Company Number: FR-AMGEN-UK226529

PATIENT
  Age: 9 Year
  Sex: Female

DRUGS (1)
  1. KINERET [Suspect]
     Indication: POLYARTHRITIS
     Dates: start: 20040101, end: 20050101

REACTIONS (1)
  - VISCERAL LEISHMANIASIS [None]
